APPROVED DRUG PRODUCT: GLYCOPYRROLATE
Active Ingredient: GLYCOPYRROLATE
Strength: 2MG
Dosage Form/Route: TABLET;ORAL
Application: A040653 | Product #002 | TE Code: AA
Applicant: PH HEALTH LTD
Approved: Aug 31, 2006 | RLD: No | RS: Yes | Type: RX